FAERS Safety Report 8373141-4 (Version None)
Quarter: 2012Q2

REPORT INFORMATION
  Report Type: 
  Country: None (occurrence: None)
  Receive Date: 20120521
  Receipt Date: 20120515
  Transmission Date: 20120825
  Serious: Yes (Other)
  Sender: FDA-Public Use
  Company Number: US-PFIZER INC-2012064699

PATIENT
  Sex: Female

DRUGS (2)
  1. LIPITOR [Suspect]
     Dosage: 40 MG, UNK
  2. LIPITOR [Suspect]
     Dosage: 80 MG, UNK

REACTIONS (2)
  - CARDIAC DISORDER [None]
  - CORONARY ARTERY OCCLUSION [None]
